FAERS Safety Report 8280171-X (Version None)
Quarter: 2012Q2

REPORT INFORMATION
  Report Type: 
  Country: None (occurrence: None)
  Receive Date: 20120412
  Receipt Date: 20120402
  Transmission Date: 20120825
  Serious: Yes (Other)
  Sender: FDA-Public Use
  Company Number: US-RB-039008-12

PATIENT
  Age: 45 Year
  Sex: Female

DRUGS (1)
  1. SUBOXONE [Suspect]
     Indication: DRUG DEPENDENCE
     Route: 060
     Dates: start: 20120327, end: 20120331

REACTIONS (6)
  - DEHYDRATION [None]
  - AMNESIA [None]
  - NAUSEA [None]
  - HOT FLUSH [None]
  - HALLUCINATION [None]
  - VOMITING [None]
